FAERS Safety Report 6919237-2 (Version None)
Quarter: 2010Q3

REPORT INFORMATION
  Report Type: 
  Country: None (occurrence: None)
  Receive Date: 20100811
  Receipt Date: 20100805
  Transmission Date: 20110219
  Serious: Yes (Hospitalization)
  Sender: FDA-Public Use
  Company Number: FR-JNJFOC-20100801799

PATIENT
  Sex: Male

DRUGS (2)
  1. HALDOL [Suspect]
     Indication: HALLUCINATION
     Route: 048
     Dates: start: 20100126, end: 20100206
  2. IMOVANE [Suspect]
     Indication: INSOMNIA
     Route: 048
     Dates: start: 20100129, end: 20100206

REACTIONS (1)
  - DISTURBANCE IN ATTENTION [None]
